FAERS Safety Report 8900316 (Version 1)
Quarter: 2012Q4

REPORT INFORMATION
  Report Type: 
  Country: US (occurrence: US)
  Receive Date: 20121109
  Receipt Date: 20121109
  Transmission Date: 20130627
  Serious: Yes (Death, Other)
  Sender: FDA-Public Use
  Company Number: PHHY2012US102323

PATIENT
  Age: 44 Year
  Sex: Female

DRUGS (4)
  1. ZOMETA [Suspect]
     Indication: HYPERCALCAEMIA
     Route: 042
  2. AREDIA [Suspect]
     Indication: HYPERCALCAEMIA
     Route: 042
  3. FUROSEMIDE [Concomitant]
     Route: 042
  4. NORMAL SALINE [Concomitant]

REACTIONS (2)
  - Death [Fatal]
  - General physical health deterioration [Unknown]
